FAERS Safety Report 5908605-3 (Version None)
Quarter: 2008Q4

REPORT INFORMATION
  Report Type: 
  Country: None (occurrence: None)
  Receive Date: 20081001
  Receipt Date: 20080922
  Transmission Date: 20090506
  Serious: Yes (Death, Hospitalization)
  Sender: FDA-Public Use
  Company Number: 2008AP002408

PATIENT
  Age: 61 Year
  Sex: Male

DRUGS (5)
  1. CYCLOSPORINE [Suspect]
     Indication: IMMUNOSUPPRESSION
  2. MYCOPHENOLATE MOFETIL [Suspect]
     Indication: IMMUNOSUPPRESSION
  3. PREDNISONE [Suspect]
     Indication: IMMUNOSUPPRESSION
  4. METHYLPREDNISOLONE [Suspect]
     Indication: IMMUNOSUPPRESSION
  5. ORTHOCLONE OKT3 [Suspect]
     Indication: IMMUNOSUPPRESSION

REACTIONS (10)
  - CARDIOGENIC SHOCK [None]
  - CORONARY ARTERY OCCLUSION [None]
  - CORONARY ARTERY THROMBOSIS [None]
  - EPSTEIN-BARR VIRUS ASSOCIATED LYMPHOPROLIFERATIVE DISORDER [None]
  - EPSTEIN-BARR VIRUS INFECTION [None]
  - HAEMODYNAMIC INSTABILITY [None]
  - LYMPHOCYTIC INFILTRATION [None]
  - RENAL FAILURE ACUTE [None]
  - TRANSPLANT FAILURE [None]
  - VASCULITIS [None]
